FAERS Safety Report 16340868 (Version 1)
Quarter: 2019Q2

REPORT INFORMATION
  Report Type: Report from Study
  Country: US (occurrence: US)
  Receive Date: 20190522
  Receipt Date: 20190522
  Transmission Date: 20190711
  Serious: Yes (Hospitalization)
  Sender: FDA-Public Use
  Company Number: US-ROCHE-2319661

PATIENT
  Age: 78 Year
  Sex: Male
  Weight: 66 kg

DRUGS (25)
  1. ETOPOSIDE. [Suspect]
     Active Substance: ETOPOSIDE
     Indication: SMALL CELL LUNG CANCER
     Dosage: FREQUENCY- DAILY ON DAYS 1, 2, AND 3 OF EACH 21-DAY CYCLE?SUBSEQUENTLY RECEIVED NEXT DOSE OF 186 MG/
     Route: 042
     Dates: start: 20180115
  2. COLACE [Concomitant]
     Active Substance: DOCUSATE SODIUM
     Route: 048
     Dates: start: 20181115
  3. DRONABINOL. [Concomitant]
     Active Substance: DRONABINOL
     Route: 048
     Dates: start: 20180214
  4. ONDANSETRON [Concomitant]
     Active Substance: ONDANSETRON
     Route: 048
     Dates: start: 20180206
  5. VANCOMYCIN [Concomitant]
     Active Substance: VANCOMYCIN
     Dosage: DOSING REGIMEN- UNKNOWN
     Route: 065
     Dates: start: 20180128
  6. HYDROCODONE [Concomitant]
     Active Substance: HYDROCODONE
     Route: 048
     Dates: start: 201803
  7. MIRTAZAPINE. [Concomitant]
     Active Substance: MIRTAZAPINE
     Route: 048
     Dates: start: 20180214
  8. CARBOPLATIN. [Suspect]
     Active Substance: CARBOPLATIN
     Dosage: AUC OF 4 MILLIGRAMS PER MILLILITER PER MINUTE (MG/ML/MIN)
     Route: 042
     Dates: start: 20180328
  9. CARBOPLATIN. [Suspect]
     Active Substance: CARBOPLATIN
     Dosage: AUC OF 4 MILLIGRAMS PER MILLILITER PER MINUTE (MG/ML/MIN)
     Route: 042
     Dates: start: 20180418
  10. DESONIDE. [Concomitant]
     Active Substance: DESONIDE
     Route: 061
     Dates: start: 20190204
  11. DULCOLAXO [Concomitant]
     Route: 054
     Dates: start: 20180214
  12. LEVOFLOXACIN. [Concomitant]
     Active Substance: LEVOFLOXACIN
     Route: 042
     Dates: start: 201801
  13. MILK OF MAGNESIA [Concomitant]
     Active Substance: MAGNESIUM HYDROXIDE
     Route: 048
     Dates: start: 20180214
  14. XANAX [Concomitant]
     Active Substance: ALPRAZOLAM
     Route: 048
     Dates: start: 20180425
  15. ATEZOLIZUMAB. [Suspect]
     Active Substance: ATEZOLIZUMAB
     Indication: SMALL CELL LUNG CANCER
     Dosage: SUBSEQUENTLY RECEIVED NEXT DOSES ON 28/FEB/2018, 28/MAR/2018, 18/APR/2018, 09/MAY/2018, 30/MAY/2018,
     Route: 042
     Dates: start: 20180115
  16. BLINDED TRILACICLIB [Suspect]
     Active Substance: TRILACICLIB
     Indication: SMALL CELL LUNG CANCER
     Dosage: FREQUENCY- DAILY ON DAYS1,2 AND 3 OF EACH 21-DAY CYCLE E/P/A THERAPY CYCLE (UP TO 4 CYCLES IN TOTAL)
     Route: 042
     Dates: start: 20180115
  17. ACETAMINOPHEN. [Concomitant]
     Active Substance: ACETAMINOPHEN
     Route: 048
     Dates: start: 20180206
  18. ARMOUR THYROID [Concomitant]
     Active Substance: THYROID, PORCINE
     Route: 048
     Dates: start: 20190329
  19. CALCIUM VITAMIN D [Concomitant]
     Active Substance: CALCIUM\VITAMIN D
     Route: 048
     Dates: start: 20180208
  20. CARBOPLATIN. [Suspect]
     Active Substance: CARBOPLATIN
     Dosage: AUC OF 4 MILLIGRAMS PER MILLILITER PER MINUTE (MG/ML/MIN)
     Route: 042
     Dates: start: 20180228
  21. VITAMIN B12 [Concomitant]
     Active Substance: CYANOCOBALAMIN
     Indication: PROPHYLAXIS
     Dosage: DAILY 6 DOSES
     Route: 065
     Dates: start: 20180104
  22. CARBOPLATIN. [Suspect]
     Active Substance: CARBOPLATIN
     Indication: SMALL CELL LUNG CANCER
     Dosage: AUC OF 5 MILLIGRAMS PER MILLILITER PER MINUTE (MG/ML/MIN)
     Route: 042
     Dates: start: 20180115
  23. FLEET ENEMA [Concomitant]
     Active Substance: SODIUM PHOSPHATE, DIBASIC\SODIUM PHOSPHATE, MONOBASIC
     Route: 054
     Dates: start: 20180206
  24. OXYCODONE [Concomitant]
     Active Substance: OXYCODONE
     Route: 048
     Dates: start: 20180215
  25. ZOSYN [Concomitant]
     Active Substance: PIPERACILLIN SODIUM\TAZOBACTAM SODIUM
     Dosage: DOSING REGIMEN- UNKNOWN
     Route: 065
     Dates: start: 20180128

REACTIONS (1)
  - Chronic obstructive pulmonary disease [Not Recovered/Not Resolved]

NARRATIVE: CASE EVENT DATE: 20190508
